FAERS Safety Report 18793953 (Version 1)
Quarter: 2021Q1

REPORT INFORMATION
  Report Type: Spontaneous
  Country: GB (occurrence: GB)
  Receive Date: 20210127
  Receipt Date: 20210127
  Transmission Date: 20210419
  Serious: Yes (Hospitalization)
  Sender: FDA-Public Use
  Company Number: GB-VERTEX PHARMACEUTICALS-2021-000866

PATIENT
  Sex: Male

DRUGS (2)
  1. KALYDECO [Suspect]
     Active Substance: IVACAFTOR
     Indication: CYSTIC FIBROSIS
     Dosage: IVACAFTOR 150 MG; FREQ UNK
     Route: 048
  2. KAFTRIO [Suspect]
     Active Substance: ELEXACAFTOR\IVACAFTOR\TEZACAFTOR
     Indication: CYSTIC FIBROSIS
     Dosage: (75 MG IVACAFTOR/ 50 MG TEZACAFTOR/100 MG ELEXACAFTOR) QD
     Route: 048
     Dates: start: 202010

REACTIONS (4)
  - Illness [Unknown]
  - Eructation [Unknown]
  - Abdominal pain upper [Unknown]
  - Flatulence [Unknown]

NARRATIVE: CASE EVENT DATE: 202012
